FAERS Safety Report 18628653 (Version 2)
Quarter: 2021Q1

REPORT INFORMATION
  Report Type: Spontaneous
  Country: US (occurrence: US)
  Receive Date: 20201217
  Receipt Date: 20210319
  Transmission Date: 20210419
  Serious: Yes (Other)
  Sender: FDA-Public Use
  Company Number: US-BAYER-2020-279954

PATIENT
  Age: 21 Year
  Sex: Female
  Weight: 68 kg

DRUGS (1)
  1. MIRENA [Suspect]
     Active Substance: LEVONORGESTREL
     Indication: CONTRACEPTION
     Dosage: 20 ?G PER DAY CONTINUOUSLY
     Route: 015
     Dates: start: 20191025, end: 20201208

REACTIONS (5)
  - Endometrial atrophy [None]
  - Device defective [None]
  - Uterine perforation [Recovered/Resolved]
  - Amenorrhoea [Recovered/Resolved]
  - Dysmenorrhoea [None]

NARRATIVE: CASE EVENT DATE: 20191226
